FAERS Safety Report 8789688 (Version 1)
Quarter: 2012Q4

REPORT INFORMATION
  Report Type: Spontaneous
  Country: US (occurrence: None)
  Receive Date: 20120911
  Receipt Date: 20120911
  Transmission Date: 20130627
  Serious: Yes (Disabling, Other)
  Sender: FDA-Public Use
  Company Number: None

PATIENT
  Age: 35 Year
  Sex: Male
  Weight: 111.13 kg

DRUGS (1)
  1. EFFIENT [Suspect]
     Indication: COAGULOPATHY
     Route: 048
     Dates: start: 20120507, end: 20120529

REACTIONS (1)
  - Cerebral haemorrhage [None]
